FAERS Safety Report 25070533 (Version 2)
Quarter: 2025Q1

REPORT INFORMATION
  Report Type: Spontaneous
  Country: US (occurrence: US)
  Receive Date: 20250312
  Receipt Date: 20250326
  Transmission Date: 20250408
  Serious: No
  Sender: SANOFI AVENTIS
  Company Number: US-SA-2025SA072241

PATIENT
  Age: 65 Year
  Sex: Male
  Weight: 106.82 kg

DRUGS (9)
  1. DUPIXENT [Suspect]
     Active Substance: DUPILUMAB
     Indication: Illness
     Dosage: 300 MG, QOW
     Route: 058
     Dates: end: 2025
  2. SERTRALINE HYDROCHLORIDE [Concomitant]
     Active Substance: SERTRALINE HYDROCHLORIDE
  3. FEXOFENADINE [FEXOFENADINE HYDROCHLORIDE] [Concomitant]
  4. LISINOPRIL [Concomitant]
     Active Substance: LISINOPRIL
  5. ROSUVASTATIN CALCIUM [Concomitant]
     Active Substance: ROSUVASTATIN CALCIUM
  6. METFORMIN HYDROCHLORIDE [Concomitant]
     Active Substance: METFORMIN HYDROCHLORIDE
  7. ASPIRIN [Concomitant]
     Active Substance: ASPIRIN
  8. CARVEDILOL [Concomitant]
     Active Substance: CARVEDILOL
  9. CETIRIZINE HCL [Concomitant]
     Active Substance: CETIRIZINE HYDROCHLORIDE

REACTIONS (2)
  - Rash [Unknown]
  - Drug ineffective [Unknown]
